FAERS Safety Report 8388756-7 (Version None)
Quarter: 2012Q2

REPORT INFORMATION
  Report Type: 
  Country: None (occurrence: None)
  Receive Date: 20120528
  Receipt Date: 20120514
  Transmission Date: 20120825
  Serious: Yes (Other)
  Sender: FDA-Public Use
  Company Number: IT-BRISTOL-MYERS SQUIBB COMPANY-16590044

PATIENT
  Age: 11 Year
  Sex: Male

DRUGS (7)
  1. METHOTREXATE [Interacting]
     Indication: BONE SARCOMA
     Dosage: 1DF=12G/M2 FOR 4HOURS
  2. ETOPOSIDE [Suspect]
     Indication: BONE SARCOMA
  3. VINCRISTINE [Interacting]
     Indication: BONE SARCOMA
  4. DOXORUBICIN HCL [Concomitant]
     Indication: BONE SARCOMA
     Dosage: ALSO RECEIVED 75MG/M2
  5. IFOSFAMIDE [Concomitant]
     Indication: BONE SARCOMA
     Dosage: 1DF=3G/M2
  6. CISPLATIN [Concomitant]
     Indication: BONE SARCOMA
  7. CYCLOPHOSPHAMIDE [Concomitant]
     Indication: BONE SARCOMA
     Dosage: 1DF=1.2G/M2

REACTIONS (2)
  - DRUG INTERACTION [None]
  - ANAPHYLACTIC REACTION [None]
